FAERS Safety Report 8856540 (Version 1)
Quarter: 2012Q4

REPORT INFORMATION
  Report Type: Spontaneous
  Country: US (occurrence: None)
  Receive Date: 20121018
  Receipt Date: 20121018
  Transmission Date: 20130627
  Serious: Yes (Hospitalization)
  Sender: FDA-Public Use
  Company Number: UTC-023376

PATIENT
  Age: 55 Year
  Sex: Female

DRUGS (1)
  1. TYVASO (6 MICROGRAM, AEROSOL FOR INHALATION) (TREPROSTINIL SODIUM) [Suspect]
     Indication: CHRONIC PULMONARY HEART DISEASE
     Dosage: 72 mcg (18 mcg, 4 in 1 D), Inhalation
     Dates: start: 20120907, end: 20120917

REACTIONS (2)
  - Haemoptysis [None]
  - Renal failure acute [None]
